FAERS Safety Report 10214179 (Version 1)
Quarter: 2014Q2

REPORT INFORMATION
  Report Type: Spontaneous
  Country: DE (occurrence: None)
  Receive Date: 20140530
  Receipt Date: 20140530
  Transmission Date: 20141212
  Serious: Yes (Disabling, Other)
  Sender: FDA-Public Use
  Company Number: 2014P1004425

PATIENT
  Age: 72 Year
  Sex: Male

DRUGS (1)
  1. AMLODIPINE [Suspect]
     Indication: HYPERTENSION

REACTIONS (14)
  - Dystonia [None]
  - Muscle spasms [None]
  - Back pain [None]
  - Dyspnoea [None]
  - Anxiety [None]
  - Moaning [None]
  - Torticollis [None]
  - Skin wrinkling [None]
  - Gait disturbance [None]
  - Restlessness [None]
  - Dystonia [None]
  - Tardive dyskinesia [None]
  - Akathisia [None]
  - Depression [None]
